FAERS Safety Report 7644793-9 (Version None)
Quarter: 2011Q3

REPORT INFORMATION
  Report Type: 
  Country: None (occurrence: None)
  Receive Date: 20110729
  Receipt Date: 20110725
  Transmission Date: 20111222
  Serious: Yes (Hospitalization)
  Sender: FDA-Public Use
  Company Number: JP-B.I. PHARMACEUTICALS,INC./RIDGEFIELD-2011-BP-17595NB

PATIENT
  Age: 85 Year
  Sex: Male

DRUGS (2)
  1. TELMISARTAN AND HYDROCHLOROTHIAZIDE [Suspect]
     Indication: HYPERTENSION
     Dosage: TELMISARTAN80MG+HYDROCHLOROTHIAZIDE12.5MG
     Route: 048
     Dates: start: 20101001
  2. ATELEC [Suspect]
     Indication: HYPERTENSION
     Route: 048

REACTIONS (1)
  - EOSINOPHILIC PNEUMONIA [None]
